FAERS Safety Report 25160214 (Version 1)
Quarter: 2025Q2

REPORT INFORMATION
  Report Type: Report from Study
  Country: US (occurrence: US)
  Receive Date: 20250404
  Receipt Date: 20250404
  Transmission Date: 20250717
  Serious: Yes (Other)
  Sender: ETON PHARMACEUTICALS
  Company Number: US-ETON PHARMACEUTICALS, INC-2025ETO000116

PATIENT

DRUGS (1)
  1. ALKINDI SPRINKLE [Suspect]
     Active Substance: HYDROCORTISONE
     Indication: Product used for unknown indication
     Dosage: 0.5 MILLIGRAM, TID
     Route: 048
     Dates: start: 20250317

REACTIONS (3)
  - Choking [Not Recovered/Not Resolved]
  - Diarrhoea [Not Recovered/Not Resolved]
  - Grunting [Not Recovered/Not Resolved]

NARRATIVE: CASE EVENT DATE: 20250318
